FAERS Safety Report 7075144-9 (Version None)
Quarter: 2010Q4

REPORT INFORMATION
  Report Type: 
  Country: None (occurrence: None)
  Receive Date: 20101029
  Receipt Date: 20100426
  Transmission Date: 20110411
  Serious: No
  Sender: FDA-Public Use
  Company Number: US-WYE-H14948010

PATIENT
  Age: 24 Year
  Sex: Female
  Weight: 81.72 kg

DRUGS (2)
  1. ALAVERT [Suspect]
     Indication: NASAL CONGESTION
     Route: 048
  2. ORAL CONTRACEPTIVE NOS [Concomitant]

REACTIONS (1)
  - DRUG EFFECT DECREASED [None]
